FAERS Safety Report 12427423 (Version 1)
Quarter: 2016Q2

REPORT INFORMATION
  Report Type: Report from Study
  Country: US (occurrence: US)
  Receive Date: 20160602
  Receipt Date: 20160602
  Transmission Date: 20160815
  Serious: Yes (Other)
  Sender: FDA-Public Use
  Company Number: US-ROCHE-1742040

PATIENT
  Age: 75 Year
  Sex: Male
  Weight: 87.17 kg

DRUGS (5)
  1. VALSARTAN. [Concomitant]
     Active Substance: VALSARTAN
  2. APIDRA [Concomitant]
     Active Substance: INSULIN GLULISINE
  3. ESBRIET [Suspect]
     Active Substance: PIRFENIDONE
     Indication: IDIOPATHIC PULMONARY FIBROSIS
     Dosage: 3 CAPSULES 3 TIMES PER DAY
     Route: 048
     Dates: start: 20160317, end: 20160520
  4. SYNTHROID [Concomitant]
     Active Substance: LEVOTHYROXINE SODIUM
  5. HCTZ [Concomitant]
     Active Substance: HYDROCHLOROTHIAZIDE

REACTIONS (7)
  - Heart rate increased [Unknown]
  - Pulmonary function test decreased [Unknown]
  - Small cell carcinoma [Unknown]
  - Fatigue [Not Recovered/Not Resolved]
  - Liver disorder [Unknown]
  - Decreased appetite [Not Recovered/Not Resolved]
  - Feeling abnormal [Not Recovered/Not Resolved]

NARRATIVE: CASE EVENT DATE: 20160411
